FAERS Safety Report 9193312 (Version 1)
Quarter: 2013Q1

REPORT INFORMATION
  Report Type: Spontaneous
  Country: US (occurrence: None)
  Receive Date: 20120703
  Receipt Date: 20120703
  Transmission Date: 20140127
  Serious: Yes (Hospitalization)
  Sender: FDA-Public Use
  Company Number: PHEH2012US010113

PATIENT
  Age: 54 Year
  Sex: Female
  Weight: 81.6 kg

DRUGS (3)
  1. GILENYA [Suspect]
     Indication: MULTIPLE SCLEROSIS
     Route: 048
     Dates: start: 20120509, end: 20120509
  2. RITALIN(METHYLPHENIDATE HYDROCHLORIDE)? [Concomitant]
  3. AMLODIPINE (AMLODIPINE) [Concomitant]

REACTIONS (1)
  - Atrioventricular block first degree [None]
